FAERS Safety Report 4896887-9 (Version None)
Quarter: 2006Q1

REPORT INFORMATION
  Report Type: 
  Country: None (occurrence: None)
  Receive Date: 20060126
  Receipt Date: 20060111
  Transmission Date: 20060701
  Serious: Yes (Other)
  Sender: FDA-Public Use
  Company Number: ENT 2006-0012

PATIENT
  Age: 85 Year
  Sex: Female

DRUGS (5)
  1. COMTAN [Suspect]
     Dosage: 600 MG (200 MG, 3 IN 1 D) ORAL
     Route: 048
     Dates: start: 20051101
  2. SINEMET [Concomitant]
  3. PRAMIPEXOLE DIHYDROCHLORIDE [Concomitant]
  4. SYNTHROID [Concomitant]
  5. COZAAR [Concomitant]

REACTIONS (1)
  - CHOLELITHIASIS [None]
